FAERS Safety Report 23190920 (Version 1)
Quarter: 2023Q4

REPORT INFORMATION
  Report Type: Spontaneous
  Country: US (occurrence: US)
  Receive Date: 20231116
  Receipt Date: 20231116
  Transmission Date: 20240110
  Serious: Yes (Hospitalization, Other)
  Sender: FDA-Public Use
  Company Number: US-Vifor (International) Inc.-VIT-2023-09029

PATIENT
  Age: 71 Year
  Sex: Female
  Weight: 68.7 kg

DRUGS (1)
  1. MIRCERA [Suspect]
     Active Substance: METHOXY POLYETHYLENE GLYCOL-EPOETIN BETA
     Indication: Nephrogenic anaemia
     Route: 040
     Dates: start: 20231028, end: 20231028

REACTIONS (6)
  - Drug hypersensitivity [Unknown]
  - Feeling abnormal [Unknown]
  - Tremor [Unknown]
  - Loss of consciousness [Unknown]
  - Cyanosis [Unknown]
  - Foaming at mouth [Unknown]

NARRATIVE: CASE EVENT DATE: 20231028
